FAERS Safety Report 15043566 (Version 2)
Quarter: 2018Q3

REPORT INFORMATION
  Report Type: Report from Study
  Country: FR (occurrence: FR)
  Receive Date: 20180621
  Receipt Date: 20180705
  Transmission Date: 20181010
  Serious: Yes (Death, Life-Threatening, Hospitalization, Other)
  Sender: FDA-Public Use
  Company Number: FR-MYLANLABS-2018M1041337

PATIENT
  Age: 40 Year
  Sex: Male
  Weight: 78 kg

DRUGS (15)
  1. BENDAMUSTINE HYDROCHLORIDE. [Suspect]
     Active Substance: BENDAMUSTINE HYDROCHLORIDE
     Dosage: 712 MG, QD
     Route: 042
     Dates: start: 20161018, end: 20161018
  2. BENDAMUSTINE HYDROCHLORIDE. [Suspect]
     Active Substance: BENDAMUSTINE HYDROCHLORIDE
     Indication: MYCOSIS FUNGOIDES
     Dosage: UNK
     Route: 042
     Dates: start: 20161123
  3. RAMIPRIL. [Concomitant]
     Active Substance: RAMIPRIL
     Indication: PRODUCT USED FOR UNKNOWN INDICATION
     Dosage: UNK
  4. ADCETRIS [Suspect]
     Active Substance: BRENTUXIMAB VEDOTIN
     Indication: MYCOSIS FUNGOIDES
     Dosage: 100 MG, UNK
     Route: 042
  5. CETIRIZINE [Concomitant]
     Active Substance: CETIRIZINE HYDROCHLORIDE
     Indication: PRODUCT USED FOR UNKNOWN INDICATION
     Dosage: UNK
  6. BENDAMUSTINE HYDROCHLORIDE. [Suspect]
     Active Substance: BENDAMUSTINE HYDROCHLORIDE
     Dosage: 356 MILLIGRAM DAILY, 178 MG TWICE DAILY (FIRST CYCLE)
     Route: 042
     Dates: start: 20160927, end: 20161018
  7. PARACETAMOL [Concomitant]
     Active Substance: ACETAMINOPHEN
     Indication: PRODUCT USED FOR UNKNOWN INDICATION
     Dosage: UNK
  8. ADCETRIS [Suspect]
     Active Substance: BRENTUXIMAB VEDOTIN
     Dosage: 98 MG, UNK
  9. DERMOVAL                           /00008501/ [Concomitant]
     Active Substance: CLOBETASOL PROPIONATE
     Indication: PRODUCT USED FOR UNKNOWN INDICATION
     Dosage: UNK
  10. ADCETRIS [Suspect]
     Active Substance: BRENTUXIMAB VEDOTIN
     Dosage: 148 MG, UNK
     Route: 042
     Dates: start: 20160927
  11. CETIRIZINE [Concomitant]
     Active Substance: CETIRIZINE HYDROCHLORIDE
     Indication: PREMEDICATION
  12. DEXERYL                            /00557601/ [Concomitant]
     Active Substance: CHLORPHENIRAMINE MALEATE\DEXTROMETHORPHAN HYDROBROMIDE\GUAIFENESIN\PHENYLEPHRINE HYDROCHLORIDE
     Indication: PRODUCT USED FOR UNKNOWN INDICATION
     Dosage: UNK
  13. ADCETRIS [Suspect]
     Active Substance: BRENTUXIMAB VEDOTIN
     Dosage: 102 UNK, UNK
     Route: 042
  14. PARACETAMOL [Concomitant]
     Active Substance: ACETAMINOPHEN
     Indication: PREMEDICATION
  15. ZOPHREN                            /00955301/ [Concomitant]
     Active Substance: ONDANSETRON
     Indication: PRODUCT USED FOR UNKNOWN INDICATION
     Dosage: UNK

REACTIONS (19)
  - Staphylococcal infection [Recovered/Resolved]
  - Anaphylactic reaction [Recovered/Resolved]
  - Hyperlactacidaemia [Fatal]
  - Mycosis fungoides [Fatal]
  - Sepsis [Fatal]
  - Acute kidney injury [Recovered/Resolved]
  - Abdominal pain [Recovered/Resolved]
  - Anaphylactic shock [Recovered/Resolved]
  - Thrombocytopenia [Recovered/Resolved]
  - Off label use [Unknown]
  - Nausea [Recovered/Resolved]
  - Dyspnoea [Fatal]
  - Neutropenia [Recovered/Resolved]
  - Disease progression [Fatal]
  - Rash [Fatal]
  - Hypotension [Recovered/Resolved]
  - Leukopenia [Recovered/Resolved]
  - Diarrhoea [Recovered/Resolved]
  - Hyperthermia [Recovered/Resolved]

NARRATIVE: CASE EVENT DATE: 201610
